FAERS Safety Report 9802918 (Version 1)
Quarter: 2014Q1

REPORT INFORMATION
  Report Type: Spontaneous
  Country: US (occurrence: None)
  Receive Date: 20140106
  Receipt Date: 20140106
  Transmission Date: 20141002
  Serious: Yes (Other)
  Sender: FDA-Public Use
  Company Number: None

PATIENT
  Age: 72 Year
  Sex: Female

DRUGS (1)
  1. ACTHAR GEL [Suspect]
     Indication: NEPHROTIC SYNDROME
     Dosage: 80UNITS  2 X WEEKLY SUBCUTANEOUS
     Route: 058
     Dates: start: 20131213

REACTIONS (3)
  - Local swelling [None]
  - Abdominal distension [None]
  - Local swelling [None]
